FAERS Safety Report 9838549 (Version 1)
Quarter: 2013Q4

REPORT INFORMATION
  Report Type: Spontaneous
  Country: US (occurrence: None)
  Receive Date: 20131206
  Receipt Date: 20131206
  Transmission Date: 20140711
  Serious: Yes (Other)
  Sender: FDA-Public Use
  Company Number: 387796

PATIENT
  Age: 50 Year
  Sex: Male

DRUGS (1)
  1. NOVOLOG [Suspect]
     Indication: TYPE 1 DIABETES MELLITUS
     Dosage: SUBCUTAN PUMP
     Route: 058
     Dates: start: 2013

REACTIONS (2)
  - Incorrect product storage [None]
  - Hypoglycaemic coma [None]
